FAERS Safety Report 7488829-7 (Version None)
Quarter: 2011Q2

REPORT INFORMATION
  Report Type: 
  Country: None (occurrence: None)
  Receive Date: 20110518
  Receipt Date: 20110510
  Transmission Date: 20111010
  Serious: Yes (Hospitalization)
  Sender: FDA-Public Use
  Company Number: CN-PFIZER INC-2011101279

PATIENT
  Age: 62 Year
  Sex: Male

DRUGS (3)
  1. CORDARONE [Suspect]
     Indication: ATRIAL FIBRILLATION
     Dosage: 200 MG, 2X/DAY
     Route: 048
     Dates: start: 20100301, end: 20100301
  2. NIFEDIPINE [Concomitant]
     Indication: HYPERTENSION
     Dosage: UNK
     Dates: start: 20060101
  3. CORDARONE [Suspect]
     Dosage: 200 MG, 1X/DAY
     Route: 048
     Dates: start: 20100302, end: 20100302

REACTIONS (3)
  - TREMOR [None]
  - ASTHENIA [None]
  - CONVULSION [None]
